FAERS Safety Report 12147695 (Version 1)
Quarter: 2016Q1

REPORT INFORMATION
  Report Type: Spontaneous
  Country: BR (occurrence: BR)
  Receive Date: 20160304
  Receipt Date: 20160304
  Transmission Date: 20160526
  Serious: Yes (Other)
  Sender: FDA-Public Use
  Company Number: BR-JNJFOC-20151219688

PATIENT
  Age: 55 Year
  Sex: Female

DRUGS (1)
  1. SIMPONI [Suspect]
     Active Substance: GOLIMUMAB
     Indication: RHEUMATOID ARTHRITIS
     Route: 058
     Dates: end: 201509

REACTIONS (8)
  - Pyrexia [Unknown]
  - Infection [Unknown]
  - Lung disorder [Unknown]
  - Weight decreased [Unknown]
  - Malaise [Unknown]
  - Decreased immune responsiveness [Unknown]
  - Pain [Unknown]
  - Liver disorder [Unknown]

NARRATIVE: CASE EVENT DATE: 201510
